FAERS Safety Report 9384174 (Version 1)
Quarter: 2013Q3

REPORT INFORMATION
  Report Type: Spontaneous
  Country: US (occurrence: None)
  Receive Date: 20130702
  Receipt Date: 20130702
  Transmission Date: 20140515
  Serious: Yes (Hospitalization)
  Sender: FDA-Public Use
  Company Number: None

PATIENT
  Age: 50 Year
  Sex: Male

DRUGS (1)
  1. CANDESARTAN [Suspect]
     Indication: HYPERTENSION
     Dosage: 32 MG DAILY PO
     Route: 048
     Dates: start: 20130613, end: 20130701

REACTIONS (2)
  - Hypertension [None]
  - Product substitution issue [None]
